FAERS Safety Report 22148140 (Version 1)
Quarter: 2023Q1

REPORT INFORMATION
  Report Type: Spontaneous
  Country: US (occurrence: None)
  Receive Date: 20230328
  Receipt Date: 20230328
  Transmission Date: 20230417
  Serious: No
  Sender: FDA-Public Use
  Company Number: None

PATIENT
  Age: 69 Year
  Sex: Female
  Weight: 119.75 kg

DRUGS (14)
  1. IBRANCE [Suspect]
     Active Substance: PALBOCICLIB
     Indication: Breast cancer female
     Dosage: OTHER FREQUENCY : 3W, 1W OFF;?
     Route: 048
  2. ASPIRIN [Concomitant]
     Active Substance: ASPIRIN
  3. ASCORBIC ACID [Concomitant]
     Active Substance: ASCORBIC ACID
  4. ATORVASTATIN [Concomitant]
  5. CELECOXIB [Concomitant]
     Active Substance: CELECOXIB
  6. DULOXETINE [Concomitant]
     Active Substance: DULOXETINE
  7. ERGOCALCIFEROL [Concomitant]
     Active Substance: ERGOCALCIFEROL
  8. EXEMESTANE [Concomitant]
     Active Substance: EXEMESTANE
  9. EZ FLU SHOT-FLUCELVAX QUAD [Concomitant]
  10. LEVOTHYROXINE [Concomitant]
     Active Substance: LEVOTHYROXINE
  11. NORCO [Concomitant]
     Active Substance: ACETAMINOPHEN\HYDROCODONE BITARTRATE
  12. NORTRIPTYLINE [Concomitant]
     Active Substance: NORTRIPTYLINE
  13. TRIPLE OMEGA-3-6-9 [Concomitant]
  14. XGEVA [Concomitant]
     Active Substance: DENOSUMAB

REACTIONS (1)
  - Acute kidney injury [None]
